FAERS Safety Report 13951957 (Version 3)
Quarter: 2018Q1

REPORT INFORMATION
  Report Type: Report from Study
  Country: CO (occurrence: CO)
  Receive Date: 20170910
  Receipt Date: 20180220
  Transmission Date: 20180508
  Serious: Yes (Hospitalization, Other)
  Sender: FDA-Public Use
  Company Number: CO-AMGEN-COLSL2017137228

PATIENT
  Age: 56 Year
  Sex: Female

DRUGS (6)
  1. NPLATE [Suspect]
     Active Substance: ROMIPLOSTIM
     Dosage: 250 MUG, QWK
     Route: 058
     Dates: start: 20170313
  2. NPLATE [Suspect]
     Active Substance: ROMIPLOSTIM
     Dosage: UNK UNK, Q2WK
     Route: 058
  3. NPLATE [Suspect]
     Active Substance: ROMIPLOSTIM
     Dosage: 250 MUG, QWK
     Route: 058
  4. NPLATE [Suspect]
     Active Substance: ROMIPLOSTIM
     Indication: IMMUNE THROMBOCYTOPENIC PURPURA
     Dosage: UNK UNK, QWK
     Route: 058
     Dates: start: 20150902
  5. NPLATE [Suspect]
     Active Substance: ROMIPLOSTIM
     Dosage: 150 MUG, QWK
     Route: 058
     Dates: start: 20150902
  6. NPLATE [Suspect]
     Active Substance: ROMIPLOSTIM
     Dosage: 125 MUG, QWK
     Route: 058

REACTIONS (6)
  - Thrombocytopenia [Recovered/Resolved]
  - Thrombocytosis [Not Recovered/Not Resolved]
  - Vein disorder [Not Recovered/Not Resolved]
  - Contusion [Unknown]
  - Off label use [Not Recovered/Not Resolved]
  - Petechiae [Not Recovered/Not Resolved]

NARRATIVE: CASE EVENT DATE: 20170315
